FAERS Safety Report 8277157-8 (Version None)
Quarter: 2012Q2

REPORT INFORMATION
  Report Type: 
  Country: None (occurrence: None)
  Receive Date: 20120412
  Receipt Date: 20120405
  Transmission Date: 20120825
  Serious: Yes (Other)
  Sender: FDA-Public Use
  Company Number: US-PFIZER INC-2012087301

PATIENT
  Sex: Female

DRUGS (1)
  1. LATANOPROST [Suspect]
     Indication: GLAUCOMA
     Dosage: UNK

REACTIONS (5)
  - PAIN [None]
  - NAUSEA [None]
  - DRUG HYPERSENSITIVITY [None]
  - MALAISE [None]
  - VISUAL IMPAIRMENT [None]
